FAERS Safety Report 9124514 (Version 1)
Quarter: 2013Q1

REPORT INFORMATION
  Report Type: Spontaneous
  Country: US (occurrence: US)
  Receive Date: 20130116
  Receipt Date: 20130116
  Transmission Date: 20140127
  Serious: Yes (Other)
  Sender: FDA-Public Use
  Company Number: US-PFIZER INC-2013017850

PATIENT
  Age: 69 Year
  Sex: Male
  Weight: 93.88 kg

DRUGS (10)
  1. INSPRA [Suspect]
     Indication: CARDIAC DISORDER
     Dosage: 25 MG, DAILY
  2. DIGOXIN [Concomitant]
     Indication: CARDIAC DISORDER
     Dosage: 0.25 MG, DAILY
  3. FUROSEMIDE [Concomitant]
     Indication: CARDIAC DISORDER
     Dosage: 40 MG, 2X/DAY
  4. MICRO-K [Concomitant]
     Indication: CARDIAC DISORDER
     Dosage: 20 MEQ, 2X/DAY
  5. LOSARTAN [Concomitant]
     Indication: CARDIAC DISORDER
     Dosage: 50 MG, DAILY
  6. PRAVASTATIN [Concomitant]
     Indication: CARDIAC DISORDER
     Dosage: 80 MG, DAILY
  7. JANUVIA [Concomitant]
     Indication: CARDIAC DISORDER
     Dosage: 100 MG, DAILY
  8. CARVEDILOL [Concomitant]
     Indication: CARDIAC DISORDER
     Dosage: 25 MG, 2X/DAY
  9. ISOSORBIDE MONONITRATE [Concomitant]
     Indication: CARDIAC DISORDER
     Dosage: 30 MG,DAILY
  10. ACETYLSALICYLIC ACID [Concomitant]
     Indication: CARDIAC DISORDER
     Dosage: 81 MG, DAILY

REACTIONS (1)
  - Gastrointestinal stromal tumour [Unknown]
